FAERS Safety Report 7812297-6 (Version None)
Quarter: 2011Q4

REPORT INFORMATION
  Report Type: 
  Country: None (occurrence: None)
  Receive Date: 20111013
  Receipt Date: 20111004
  Transmission Date: 20120403
  Serious: Yes (Hospitalization)
  Sender: FDA-Public Use
  Company Number: AT-JNJFOC-20110903408

PATIENT
  Sex: Male
  Weight: 86 kg

DRUGS (2)
  1. STELARA [Suspect]
     Indication: PSORIASIS
     Route: 058
     Dates: start: 20110606
  2. STELARA [Suspect]
     Route: 058
     Dates: start: 20091130

REACTIONS (1)
  - TRANSITIONAL CELL CARCINOMA [None]
